FAERS Safety Report 10188665 (Version 1)
Quarter: 2014Q2

REPORT INFORMATION
  Report Type: Spontaneous
  Country: US (occurrence: US)
  Receive Date: 20140522
  Receipt Date: 20140522
  Transmission Date: 20141212
  Serious: No
  Sender: FDA-Public Use
  Company Number: US-SA-2014SA035307

PATIENT
  Sex: 0

DRUGS (1)
  1. LANTUS [Suspect]
     Indication: PRODUCT USED FOR UNKNOWN INDICATION
     Route: 065

REACTIONS (5)
  - Liver function test abnormal [Unknown]
  - Alopecia [Unknown]
  - Weight abnormal [Unknown]
  - Visual acuity reduced [Unknown]
  - Drug dose omission [Unknown]
